FAERS Safety Report 19951689 (Version 1)
Quarter: 2021Q4

REPORT INFORMATION
  Report Type: Report from Study
  Country: AT (occurrence: AT)
  Receive Date: 20211013
  Receipt Date: 20211013
  Transmission Date: 20220304
  Serious: Yes (Hospitalization, Other)
  Sender: FDA-Public Use
  Company Number: AT-002147023-NVSC2021AT136373

PATIENT
  Age: 60 Year
  Sex: Male

DRUGS (1)
  1. METFORMIN [Suspect]
     Active Substance: METFORMIN HYDROCHLORIDE
     Indication: Product used for unknown indication
     Dosage: UNK
     Route: 065

REACTIONS (7)
  - Cerebrovascular accident [Unknown]
  - Glycosylated haemoglobin decreased [Unknown]
  - Hypoaesthesia [Unknown]
  - Memory impairment [Unknown]
  - Diabetic neuropathy [Unknown]
  - Blood glucose decreased [Unknown]
  - Sensory loss [Unknown]
